FAERS Safety Report 11543606 (Version 3)
Quarter: 2016Q1

REPORT INFORMATION
  Report Type: Report from Study
  Country: DE (occurrence: DE)
  Receive Date: 20150923
  Receipt Date: 20160321
  Transmission Date: 20160525
  Serious: Yes (Other)
  Sender: FDA-Public Use
  Company Number: DE-GILEAD-2015-0140269

PATIENT
  Age: 34 Year
  Sex: Male
  Weight: 77 kg

DRUGS (6)
  1. MIRTAZAPIN [Concomitant]
     Active Substance: MIRTAZAPINE
     Indication: BIPOLAR DISORDER
     Dosage: 45 MG, QD
     Route: 048
     Dates: start: 20140325, end: 20150307
  2. MELPERON [Concomitant]
     Active Substance: MELPERONE
     Indication: BIPOLAR DISORDER
     Dosage: 25 MG, QHS PRN
     Route: 048
     Dates: start: 20140325
  3. LEDIPASVIR/SOFOSBUVIR [Suspect]
     Active Substance: LEDIPASVIR\SOFOSBUVIR
     Indication: CHRONIC HEPATITIS C
     Dosage: 1 DF, QD
     Route: 048
     Dates: start: 20150111, end: 20150307
  4. TRUVADA [Suspect]
     Active Substance: EMTRICITABINE\TENOFOVIR DISOPROXIL FUMARATE
     Indication: HIV INFECTION CDC CATEGORY A
     Dosage: 245 MG, QD
     Route: 048
     Dates: start: 20130701
  5. PREZISTA [Concomitant]
     Active Substance: DARUNAVIR ETHANOLATE
     Indication: HIV INFECTION CDC CATEGORY A
     Dosage: 800 MG, QD
     Route: 048
     Dates: start: 20130701
  6. NORVIR [Concomitant]
     Active Substance: RITONAVIR
     Indication: HIV INFECTION CDC CATEGORY A
     Dosage: 100 MG, QD
     Route: 048
     Dates: start: 20130701

REACTIONS (2)
  - Gastroenteritis [Recovered/Resolved]
  - Fatigue [Recovered/Resolved]

NARRATIVE: CASE EVENT DATE: 20150126
